FAERS Safety Report 8054336-6 (Version None)
Quarter: 2012Q1

REPORT INFORMATION
  Report Type: 
  Country: None (occurrence: None)
  Receive Date: 20120118
  Receipt Date: 20120113
  Transmission Date: 20120608
  Serious: Yes (Hospitalization, Other)
  Sender: FDA-Public Use
  Company Number: PHEH2010US01808

PATIENT
  Sex: Female

DRUGS (10)
  1. TOPROL-XL [Concomitant]
     Dosage: 25 MG, QD
  2. ARIMIDEX [Concomitant]
     Dosage: 1 MG, QD
  3. PRAVACHOL [Concomitant]
     Dosage: 20 MG, QD
  4. OMEPRAZOLE [Concomitant]
     Dosage: 20 MG, QD
  5. ZETIA [Concomitant]
     Dosage: 10 MG, QD
  6. DIOVAN [Concomitant]
     Dosage: 160 MG, QD
  7. ASPIRIN [Concomitant]
     Dosage: 325 MG, QD
  8. ZOMETA [Suspect]
     Dates: start: 20040501, end: 20061001
  9. CALCIUM [Concomitant]
  10. ISOSORBIDE DINITRATE [Concomitant]
     Dosage: 20 MG, BID

REACTIONS (47)
  - SEPTIC SHOCK [None]
  - HYPERTENSION [None]
  - DECUBITUS ULCER [None]
  - CARDIOMEGALY [None]
  - DYSPNOEA [None]
  - PLEURAL EFFUSION [None]
  - DISABILITY [None]
  - PAIN [None]
  - GASTROOESOPHAGEAL REFLUX DISEASE [None]
  - MASS [None]
  - ANAEMIA [None]
  - TROPONIN I INCREASED [None]
  - MITRAL VALVE INCOMPETENCE [None]
  - LUNG INFILTRATION [None]
  - UROSEPSIS [None]
  - OSTEOARTHRITIS [None]
  - GINGIVITIS [None]
  - MEMORY IMPAIRMENT [None]
  - ACUTE CORONARY SYNDROME [None]
  - RENAL FAILURE CHRONIC [None]
  - INJURY [None]
  - PAIN IN JAW [None]
  - LEUKOCYTOSIS [None]
  - ATELECTASIS [None]
  - HYPOAESTHESIA [None]
  - STOMATITIS [None]
  - CARDIAC FAILURE CONGESTIVE [None]
  - TRICUSPID VALVE INCOMPETENCE [None]
  - PULMONARY HYPERTENSION [None]
  - CANCER PAIN [None]
  - BONE LESION [None]
  - MUSCLE SPASMS [None]
  - HYPERLIPIDAEMIA [None]
  - ISCHAEMIC CARDIOMYOPATHY [None]
  - URINARY TRACT INFECTION [None]
  - ANXIETY [None]
  - QUALITY OF LIFE DECREASED [None]
  - MUSCLE TWITCHING [None]
  - HYPOKALAEMIA [None]
  - VENTRICULAR DYSFUNCTION [None]
  - AORTIC VALVE INCOMPETENCE [None]
  - PNEUMONIA [None]
  - NEUROPATHY PERIPHERAL [None]
  - PATHOLOGICAL FRACTURE [None]
  - OSTEONECROSIS OF JAW [None]
  - TOOTH LOSS [None]
  - BONE PAIN [None]
